FAERS Safety Report 4959436-2 (Version None)
Quarter: 2006Q1

REPORT INFORMATION
  Report Type: 
  Country: None (occurrence: None)
  Receive Date: 20060331
  Receipt Date: 20051020
  Transmission Date: 20060701
  Serious: Yes (Other)
  Sender: FDA-Public Use
  Company Number: US-MERCK-0510USA08451

PATIENT
  Age: 58 Year
  Sex: Female
  Weight: 102 kg

DRUGS (6)
  1. VIOXX [Suspect]
     Indication: ARTHRITIS
     Route: 048
     Dates: start: 20010101, end: 20040901
  2. ALLEGRA [Concomitant]
     Route: 065
  3. PREVACID [Concomitant]
     Indication: GASTROOESOPHAGEAL REFLUX DISEASE
     Route: 065
  4. PREVACID [Concomitant]
     Indication: HAEMORRHAGE
     Route: 065
  5. ZOLOFT [Concomitant]
     Route: 065
  6. CELEBREX [Concomitant]
     Route: 048
     Dates: start: 20031028, end: 20031228

REACTIONS (3)
  - DEEP VEIN THROMBOSIS [None]
  - DEPRESSION [None]
  - PULMONARY EMBOLISM [None]
